FAERS Safety Report 16387714 (Version 2)
Quarter: 2019Q2

REPORT INFORMATION
  Report Type: Spontaneous
  Country: CA (occurrence: CA)
  Receive Date: 20190604
  Receipt Date: 20190617
  Transmission Date: 20190711
  Serious: Yes (Other)
  Sender: FDA-Public Use
  Company Number: CA-AUROBINDO-AUR-APL-2019-030298

PATIENT

DRUGS (4)
  1. HEPARIN [Suspect]
     Active Substance: HEPARIN SODIUM
     Indication: ANTICOAGULANT THERAPY
     Dosage: UNK
     Route: 065
  2. ASPIRIN. [Suspect]
     Active Substance: ASPIRIN
     Indication: ANTICOAGULANT THERAPY
     Dosage: 325 MILLIGRAM, DAILY
     Route: 065
  3. CLOPIDOGREL [Suspect]
     Active Substance: CLOPIDOGREL BISULFATE
     Indication: ANTICOAGULANT THERAPY
     Dosage: 75 MILLIGRAM, DAILY
     Route: 065
  4. ASPIRIN. [Suspect]
     Active Substance: ASPIRIN
     Dosage: 81 MILLIGRAM, DAILY
     Route: 065

REACTIONS (9)
  - Dysphagia [Unknown]
  - Coronary artery disease [Unknown]
  - Cerebral infarction [Unknown]
  - Hemiparesis [Unknown]
  - Haematoma [Unknown]
  - Electrocardiogram ST segment depression [Unknown]
  - Aphasia [Unknown]
  - Chest discomfort [Unknown]
  - Confusional state [Unknown]
